FAERS Safety Report 10797241 (Version 1)
Quarter: 2015Q1

REPORT INFORMATION
  Report Type: Spontaneous
  Country: US (occurrence: US)
  Receive Date: 20150216
  Receipt Date: 20150216
  Transmission Date: 20150721
  Serious: Yes (Death)
  Sender: FDA-Public Use
  Company Number: US-ABBVIE-15P-163-1346746-00

PATIENT
  Age: 46 Year
  Sex: Male

DRUGS (2)
  1. ANDROGEL [Suspect]
     Active Substance: TESTOSTERONE
     Indication: BLOOD TESTOSTERONE DECREASED
     Route: 061
     Dates: start: 201304, end: 201304
  2. TESTIM [Suspect]
     Active Substance: TESTOSTERONE
     Indication: BLOOD TESTOSTERONE DECREASED
     Route: 065
     Dates: end: 201304

REACTIONS (5)
  - Pain [Unknown]
  - Sudden cardiac death [Fatal]
  - Economic problem [Unknown]
  - Chest pain [Unknown]
  - Injury [Unknown]

NARRATIVE: CASE EVENT DATE: 20130410
